FAERS Safety Report 9021877 (Version 1)
Quarter: 2013Q1

REPORT INFORMATION
  Report Type: Report from Study
  Country: US (occurrence: US)
  Receive Date: 20130118
  Receipt Date: 20130118
  Transmission Date: 20140127
  Serious: No
  Sender: FDA-Public Use
  Company Number: US-VERTEX PHARMACEUTICALS INC.-2013-000748

PATIENT
  Age: 61 None
  Sex: Male
  Weight: 80 kg

DRUGS (5)
  1. VX-950 (TELAPREVIR) [Suspect]
     Indication: HEPATITIS C
     Dosage: 750 MG, TID
     Route: 048
  2. PEGASYS [Suspect]
     Indication: HEPATITIS C
     Dosage: 180 ?G, UNK
  3. AMLODIPINE [Concomitant]
  4. LOSARTAN POTASSIUM [Concomitant]
  5. TYLENOL /00020001/ [Concomitant]

REACTIONS (4)
  - Dyspnoea [Unknown]
  - Dizziness [Unknown]
  - Dysgeusia [Unknown]
  - Nausea [Unknown]
